FAERS Safety Report 6076320-4 (Version None)
Quarter: 2009Q1

REPORT INFORMATION
  Report Type: 
  Country: None (occurrence: None)
  Receive Date: 20090209
  Receipt Date: 20090127
  Transmission Date: 20090719
  Serious: Yes (Hospitalization, Other)
  Sender: FDA-Public Use
  Company Number: 2009AL000496

PATIENT
  Sex: Female

DRUGS (1)
  1. OXAZEPAM [Suspect]
     Dosage: 30 MG; TID; PO
     Route: 048

REACTIONS (1)
  - ROAD TRAFFIC ACCIDENT [None]
